FAERS Safety Report 13710966 (Version 2)
Quarter: 2017Q3

REPORT INFORMATION
  Report Type: Report from Study
  Country: None (occurrence: US)
  Receive Date: 20170703
  Receipt Date: 20170920
  Transmission Date: 20171127
  Serious: Yes (Hospitalization, Disabling, Other)
  Sender: FDA-Public Use
  Company Number: US-ABBVIE-17K-163-2025015-00

PATIENT
  Age: 31 Year
  Sex: Female

DRUGS (3)
  1. HUMIRA [Suspect]
     Active Substance: ADALIMUMAB
     Route: 058
     Dates: start: 201702, end: 201708
  2. HUMIRA [Suspect]
     Active Substance: ADALIMUMAB
     Indication: PSORIASIS
     Route: 058
     Dates: start: 2014, end: 201702
  3. HUMIRA [Suspect]
     Active Substance: ADALIMUMAB
     Route: 058
     Dates: start: 20170901

REACTIONS (14)
  - Oropharyngeal pain [Recovered/Resolved]
  - Rash [Recovered/Resolved]
  - Rib fracture [Recovered/Resolved]
  - Head injury [Recovered/Resolved]
  - Muscle rupture [Recovered/Resolved]
  - Scarlet fever [Recovered/Resolved]
  - Road traffic accident [Recovered/Resolved]
  - Traumatic intracranial haemorrhage [Recovered/Resolved]
  - Laceration [Recovered/Resolved]
  - Loss of consciousness [Recovered/Resolved]
  - Pain [Recovered/Resolved]
  - Malaise [Recovered/Resolved]
  - Pharyngitis streptococcal [Recovered/Resolved]
  - Pharyngitis streptococcal [Recovered/Resolved]

NARRATIVE: CASE EVENT DATE: 2016
